FAERS Safety Report 16379109 (Version 1)
Quarter: 2019Q2

REPORT INFORMATION
  Report Type: Spontaneous
  Country: US (occurrence: US)
  Receive Date: 20190531
  Receipt Date: 20190531
  Transmission Date: 20190711
  Serious: Yes (Life-Threatening, Hospitalization, Other)
  Sender: FDA-Public Use
  Company Number: US-PFIZER INC-2019091649

PATIENT
  Age: 67 Year
  Sex: Female
  Weight: 79.18 kg

DRUGS (2)
  1. ZOMETA [Concomitant]
     Active Substance: ZOLEDRONIC ACID
     Indication: BONE LOSS
     Dosage: UNK
     Dates: start: 201801, end: 201806
  2. IBRANCE [Suspect]
     Active Substance: PALBOCICLIB
     Indication: BREAST CANCER
     Dosage: UNK, DAILYCYCLIC[28 DAYS ON, 1 WEEK OFF]
     Route: 048
     Dates: start: 20180116, end: 20180610

REACTIONS (4)
  - Pulmonary toxicity [Unknown]
  - Fibrosis [Unknown]
  - Dyspnoea [Unknown]
  - Interstitial lung disease [Recovering/Resolving]

NARRATIVE: CASE EVENT DATE: 20180611
